APPROVED DRUG PRODUCT: ROPINIROLE HYDROCHLORIDE
Active Ingredient: ROPINIROLE HYDROCHLORIDE
Strength: EQ 3MG BASE
Dosage Form/Route: TABLET;ORAL
Application: A090411 | Product #005 | TE Code: AB
Applicant: ZYDUS LIFESCIENCES LTD
Approved: Jun 1, 2009 | RLD: No | RS: No | Type: RX